FAERS Safety Report 7931917-9 (Version None)
Quarter: 2011Q4

REPORT INFORMATION
  Report Type: 
  Country: None (occurrence: None)
  Receive Date: 20111121
  Receipt Date: 20111111
  Transmission Date: 20120403
  Serious: Yes (Hospitalization)
  Sender: FDA-Public Use
  Company Number: US-BAYER-2011-022498

PATIENT
  Age: 19 Year
  Sex: Female
  Weight: 73.1 kg

DRUGS (8)
  1. HYDROCODONE BITARTRATE AND ACETAMINOPHEN [Concomitant]
     Dosage: UNK
     Route: 048
     Dates: start: 20070215
  2. LORTAB [Concomitant]
  3. ORTHO TRI-CYCLEN [Concomitant]
  4. YASMIN [Suspect]
     Indication: ACNE
  5. YASMIN [Suspect]
     Indication: PREMENSTRUAL SYNDROME
  6. YASMIN [Suspect]
     Indication: CONTRACEPTION
     Dosage: UNK
     Dates: start: 20070213, end: 20070430
  7. OXYCODONE HCL [Concomitant]
     Dosage: 20 MG, BID
     Route: 048
     Dates: start: 20070209
  8. CELEBREX [Concomitant]
     Dosage: 200 MG, QD
     Route: 048
     Dates: start: 20070209

REACTIONS (7)
  - SKIN DISCOLOURATION [None]
  - CONTUSION [None]
  - OEDEMA PERIPHERAL [None]
  - VENOUS INJURY [None]
  - INJURY [None]
  - DEEP VEIN THROMBOSIS [None]
  - PAIN [None]
